FAERS Safety Report 11303997 (Version 1)
Quarter: 2015Q3

REPORT INFORMATION
  Report Type: Spontaneous
  Country: US (occurrence: US)
  Receive Date: 20150723
  Receipt Date: 20150723
  Transmission Date: 20151125
  Serious: No
  Sender: FDA-Public Use
  Company Number: US-JNJFOC-20140820462

PATIENT
  Sex: Female

DRUGS (3)
  1. PEPCID AC MAXIMUM STRENGTH [Suspect]
     Active Substance: FAMOTIDINE
     Indication: DYSPEPSIA
     Dosage: 1-2 TABLETS ONE TO TWO TIMES PER DAY
     Route: 048
     Dates: start: 20140818
  2. LORAZEPAM. [Concomitant]
     Active Substance: LORAZEPAM
     Indication: ANXIETY
     Route: 065
  3. PEPCID AC MAXIMUM STRENGTH [Suspect]
     Active Substance: FAMOTIDINE
     Route: 048

REACTIONS (6)
  - Thinking abnormal [Unknown]
  - Product lot number issue [Unknown]
  - Anxiety [Unknown]
  - Product expiration date issue [Unknown]
  - Feeling jittery [Unknown]
  - Poor quality sleep [Unknown]

NARRATIVE: CASE EVENT DATE: 20140819
